FAERS Safety Report 8461202 (Version 2)
Quarter: 2013Q1

REPORT INFORMATION
  Report Type: Spontaneous
  Country: US (occurrence: US)
  Receive Date: 20120315
  Receipt Date: 20130314
  Transmission Date: 20140127
  Serious: Yes (Hospitalization, Other)
  Sender: FDA-Public Use
  Company Number: US-ROCHE-1047380

PATIENT
  Sex: Female
  Weight: 43.13 kg

DRUGS (2)
  1. ACCUTANE [Suspect]
     Indication: ACNE
     Route: 065
     Dates: start: 1982, end: 1986
  2. ACCUTANE [Suspect]
     Route: 065
     Dates: start: 1992, end: 1993

REACTIONS (4)
  - Injury [Unknown]
  - Colon injury [Unknown]
  - Depression [Unknown]
  - Intestinal obstruction [Unknown]
